FAERS Safety Report 17816895 (Version 1)
Quarter: 2020Q2

REPORT INFORMATION
  Report Type: Spontaneous
  Country: US (occurrence: US)
  Receive Date: 20200522
  Receipt Date: 20200522
  Transmission Date: 20200714
  Serious: No
  Sender: FDA-Public Use
  Company Number: US-FDC LIMITED-2020RIS00115

PATIENT
  Age: 63 Year
  Sex: Female
  Weight: 68.03 kg

DRUGS (9)
  1. VITAMIN C [Concomitant]
     Active Substance: ASCORBIC ACID
  2. LUTEIN [Concomitant]
     Active Substance: LUTEIN
  3. BILBERRY [Concomitant]
     Active Substance: BILBERRY
  4. TIMOLOL MALEATE. [Suspect]
     Active Substance: TIMOLOL MALEATE
     Dosage: 1 DROP, 1X/DAY IN BOTH EYES ^IN THE MORNING (8:30AM-9AM)^ ^OFF AND ON BUT MOSTLY ON^
  5. MAGNESIUM [Concomitant]
     Active Substance: MAGNESIUM
  6. TIMOLOL MALEATE. [Suspect]
     Active Substance: TIMOLOL MALEATE
     Indication: INTRAOCULAR PRESSURE INCREASED
     Dosage: 1 DROP, 1X/DAY IN BOTH EYES ^IN THE MORNING (8:30AM-9AM)^ ^OFF AND ON BUT MOSTLY ON^
     Dates: start: 2018
  7. FISH OIL [Concomitant]
     Active Substance: FISH OIL
  8. VITAMIN D [Concomitant]
     Active Substance: VITAMIN D NOS
  9. VITAMIN B12 [Concomitant]
     Active Substance: CYANOCOBALAMIN

REACTIONS (11)
  - Eye irritation [Recovered/Resolved]
  - Eye pain [Recovered/Resolved]
  - Incorrect route of product administration [Not Recovered/Not Resolved]
  - Malaise [Recovered/Resolved]
  - Asthenia [Recovered/Resolved]
  - Inappropriate schedule of product administration [Not Recovered/Not Resolved]
  - Product dose omission [Not Recovered/Not Resolved]
  - Anxiety [Not Recovered/Not Resolved]
  - Hypersensitivity [Recovered/Resolved]
  - Influenza like illness [Recovered/Resolved]
  - Feeling abnormal [Recovered/Resolved]

NARRATIVE: CASE EVENT DATE: 2018
